FAERS Safety Report 5319602-3 (Version None)
Quarter: 2007Q2

REPORT INFORMATION
  Report Type: 
  Country: None (occurrence: None)
  Receive Date: 20070503
  Receipt Date: 20070418
  Transmission Date: 20071010
  Serious: Yes (Death, Hospitalization, Congenital Anomaly)
  Sender: FDA-Public Use
  Company Number: NPX20070001

PATIENT
  Age: 30 Day
  Sex: Female
  Weight: 1.91 kg

DRUGS (1)
  1. NAPROXEN SODIUM [Suspect]
     Dosage: 1100 MG /DAY INUTERO

REACTIONS (29)
  - ABDOMINAL DISTENSION [None]
  - BLOOD CULTURE POSITIVE [None]
  - BLOOD POTASSIUM INCREASED [None]
  - BLOOD PRESSURE DECREASED [None]
  - BLOOD SODIUM DECREASED [None]
  - CAESAREAN SECTION [None]
  - CANDIDIASIS [None]
  - DISSEMINATED INTRAVASCULAR COAGULATION [None]
  - DRUG EXPOSURE DURING PREGNANCY [None]
  - ELECTROLYTE IMBALANCE [None]
  - FOETAL GROWTH RETARDATION [None]
  - FOETAL MOVEMENTS DECREASED [None]
  - GENERALISED OEDEMA [None]
  - HAEMOGLOBIN INCREASED [None]
  - ILEITIS [None]
  - INTESTINAL ISCHAEMIA [None]
  - INTESTINAL PERFORATION [None]
  - JOINT CONTRACTURE [None]
  - NEONATAL ANURIA [None]
  - NEONATAL DISORDER [None]
  - OLIGOHYDRAMNIOS [None]
  - PERITONEAL CANDIDIASIS [None]
  - PERITONEAL DIALYSIS [None]
  - RENAL APLASIA [None]
  - RENAL TUBULAR DISORDER [None]
  - SEPSIS NEONATAL [None]
  - SMALL FOR DATES BABY [None]
  - UNEVALUABLE EVENT [None]
  - WHITE BLOOD CELL COUNT INCREASED [None]
